FAERS Safety Report 8275177-0 (Version None)
Quarter: 2012Q2

REPORT INFORMATION
  Report Type: 
  Country: None (occurrence: None)
  Receive Date: 20120411
  Receipt Date: 20120410
  Transmission Date: 20120825
  Serious: Yes (Life-Threatening, Hospitalization)
  Sender: FDA-Public Use
  Company Number: GXKR2012DE001253

PATIENT
  Sex: Female
  Weight: 85 kg

DRUGS (13)
  1. ACETYLSALICYLIC ACID SRT [Concomitant]
     Dosage: 100 MG, QD
     Route: 048
  2. PANTOPRAZOLE [Concomitant]
     Dosage: 20 MG, BID
     Route: 048
  3. KALIUM JODATUM [Concomitant]
     Dosage: 200 UG, QD
     Route: 048
  4. PREGABALIN [Concomitant]
     Dosage: 75 MG, QHS
     Route: 048
  5. ARAVA [Concomitant]
     Dosage: 10 MG, QD
     Route: 048
  6. HYDROCHLOROTHIAZIDE [Concomitant]
     Dosage: 25 MG, QD
     Route: 048
  7. LEVODOPA BENSERAZIDE HYDROCHLO [Concomitant]
     Dosage: 1 DF, QHS
     Route: 048
  8. METOPROLOL TARTRATE [Concomitant]
     Dosage: 47.5 MG, BID
     Route: 048
  9. PREDNISOLONE [Concomitant]
     Dosage: 5 MG, QD
     Route: 048
  10. METHOTREXATE [Suspect]
     Indication: OSTEOARTHRITIS
     Dosage: 1X1 TABLET ON 6 DAYS PER WEEK
     Route: 048
     Dates: start: 20120126, end: 20120208
  11. FOLSAEURE ^HEVERT^ [Concomitant]
     Dosage: 5 MG, QW
     Route: 048
  12. RAMIPRIL [Concomitant]
     Dosage: 1.25 MG, QD
     Route: 048
  13. CALCIUM W/VITAMIN D NOS [Concomitant]
     Dosage: 1 DF, BID
     Route: 048

REACTIONS (4)
  - ALOPECIA [None]
  - THROMBOCYTOPENIA [None]
  - INAPPROPRIATE SCHEDULE OF DRUG ADMINISTRATION [None]
  - LEUKOPENIA [None]
